FAERS Safety Report 8883614 (Version 1)
Quarter: 2012Q4

REPORT INFORMATION
  Report Type: 
  Country: US (occurrence: US)
  Receive Date: 20121102
  Receipt Date: 20121102
  Transmission Date: 20130627
  Serious: No
  Sender: FDA-Public Use
  Company Number: US-ASTRAZENECA-2012SE01563

PATIENT
  Age: 87 Year
  Sex: Female
  Weight: 63.5 kg

DRUGS (3)
  1. CRESTOR [Suspect]
     Indication: CARDIAC DISORDER
     Route: 048
     Dates: start: 201101
  2. BYSTOLIC [Concomitant]
  3. TRIAMTERENE [Concomitant]

REACTIONS (2)
  - Adverse event [Unknown]
  - Myalgia [Unknown]
